FAERS Safety Report 14505074 (Version 1)
Quarter: 2018Q1

REPORT INFORMATION
  Report Type: Spontaneous
  Country: US (occurrence: US)
  Receive Date: 20180207
  Receipt Date: 20180207
  Transmission Date: 20180509
  Serious: Yes (Other)
  Sender: FDA-Public Use
  Company Number: None

PATIENT
  Age: 51 Year
  Sex: Female

DRUGS (1)
  1. LACTULOSE SOLUTION USP [Suspect]
     Active Substance: LACTULOSE
     Indication: CONSTIPATION
     Dosage: STRENGTH - 10 GM 14 ML G GRAM(S)
     Route: 048
     Dates: start: 20180206, end: 20180206

REACTIONS (6)
  - Wrong dose [None]
  - Product odour abnormal [None]
  - Product taste abnormal [None]
  - Product quality issue [None]
  - Nausea [None]
  - Product container issue [None]

NARRATIVE: CASE EVENT DATE: 20180206
